FAERS Safety Report 6510883-7 (Version None)
Quarter: 2009Q4

REPORT INFORMATION
  Report Type: 
  Country: None (occurrence: None)
  Receive Date: 20091222
  Receipt Date: 20090115
  Transmission Date: 20100525
  Serious: No
  Sender: FDA-Public Use
  Company Number: US-ASTRAZENECA-2009UW01275

PATIENT
  Age: 65 Year
  Sex: Female
  Weight: 68.9 kg

DRUGS (4)
  1. CRESTOR [Suspect]
     Indication: HYPERCHOLESTEROLAEMIA
     Route: 048
     Dates: start: 20081201, end: 20090114
  2. METOPROLOL SUCCINATE [Concomitant]
     Route: 048
  3. ASPIRIN [Concomitant]
  4. MULTI-VITAMINS [Concomitant]

REACTIONS (2)
  - GAIT DISTURBANCE [None]
  - MYALGIA [None]
